FAERS Safety Report 8190674-4 (Version None)
Quarter: 2012Q1

REPORT INFORMATION
  Report Type: 
  Country: None (occurrence: None)
  Receive Date: 20120307
  Receipt Date: 20120227
  Transmission Date: 20120608
  Serious: Yes (Other)
  Sender: FDA-Public Use
  Company Number: FR-ROCHE-1046070

PATIENT
  Sex: Female

DRUGS (2)
  1. XOLAIR [Suspect]
     Indication: PRODUCT USED FOR UNKNOWN INDICATION
  2. XOLAIR [Suspect]
     Dates: start: 20120201

REACTIONS (5)
  - HEADACHE [None]
  - VOMITING [None]
  - HOT FLUSH [None]
  - NAUSEA [None]
  - BLOOD PRESSURE DECREASED [None]
